FAERS Safety Report 4509541-X (Version None)
Quarter: 2004Q4

REPORT INFORMATION
  Report Type: 
  Country: None (occurrence: None)
  Receive Date: 20041119
  Receipt Date: 20041115
  Transmission Date: 20050328
  Serious: Yes (Other)
  Sender: FDA-Public Use
  Company Number: 200421011BWH

PATIENT
  Age: 93 Year
  Sex: Female

DRUGS (1)
  1. CIPROFLOXACIN HYDROCHLORIDE [Suspect]
     Indication: EAR INFECTION
     Dosage: 500 MG, BID, ORAL
     Route: 048
     Dates: start: 20041108

REACTIONS (1)
  - ARRHYTHMIA [None]
